FAERS Safety Report 20375336 (Version 2)
Quarter: 2022Q1

REPORT INFORMATION
  Report Type: Spontaneous
  Country: IT (occurrence: IT)
  Receive Date: 20220125
  Receipt Date: 20220201
  Transmission Date: 20220424
  Serious: Yes (Other)
  Sender: FDA-Public Use
  Company Number: IT-MLMSERVICE-20220110-3310081-2

PATIENT
  Age: 60 Year
  Sex: Female

DRUGS (2)
  1. CARBOPLATIN [Suspect]
     Active Substance: CARBOPLATIN
     Indication: Ovarian cancer stage III
     Dosage: 500 MG, CYCLIC (AS PER 16-STEP DESENSITIZATION PROTOCOL)
     Dates: start: 2019
  2. GEMCITABINE HYDROCHLORIDE [Concomitant]
     Active Substance: GEMCITABINE HYDROCHLORIDE
     Indication: Ovarian cancer stage III
     Dosage: UNK
     Dates: start: 201903

REACTIONS (4)
  - Erythema [Unknown]
  - Pruritus [Unknown]
  - Throat tightness [Unknown]
  - Flushing [Unknown]

NARRATIVE: CASE EVENT DATE: 20190101
